FAERS Safety Report 17023648 (Version 20)
Quarter: 2021Q2

REPORT INFORMATION
  Report Type: Report from Study
  Country: BR (occurrence: BR)
  Receive Date: 20191113
  Receipt Date: 20210428
  Transmission Date: 20210716
  Serious: Yes (Life-Threatening, Hospitalization)
  Sender: FDA-Public Use
  Company Number: BR-ROCHE-2469077

PATIENT
  Age: 47 Year
  Sex: Female
  Weight: 90.35 kg

DRUGS (74)
  1. OCRELIZUMAB. [Suspect]
     Active Substance: OCRELIZUMAB
     Dosage: INFUSION COMPLETED WITHOUT INTERVENTION
     Route: 042
     Dates: start: 20140522, end: 20140522
  2. OCRELIZUMAB. [Suspect]
     Active Substance: OCRELIZUMAB
     Dosage: INFUSION COMPLETED WITHOUT INTERVENTION
     Route: 042
     Dates: start: 20150430, end: 20150430
  3. OCRELIZUMAB. [Suspect]
     Active Substance: OCRELIZUMAB
     Dosage: INFUSION COMPLETED WITHOUT INTERVENTION
     Route: 042
     Dates: start: 20170822, end: 20170822
  4. GLUCOSAMINE AND CHONDROITIN [Concomitant]
     Active Substance: CHONDROITIN SULFATE (BOVINE)\GLUCOSAMINE HYDROCHLORIDE
     Indication: PAIN
     Dosage: 1 UNITS
     Dates: start: 20160622
  5. PEMBROLIZUMAB. [Concomitant]
     Active Substance: PEMBROLIZUMAB
     Dates: start: 20191211, end: 20191211
  6. PEMBROLIZUMAB. [Concomitant]
     Active Substance: PEMBROLIZUMAB
     Dates: start: 20200117, end: 20200118
  7. DEXAMETHASONE. [Concomitant]
     Active Substance: DEXAMETHASONE
     Indication: DERMATITIS CONTACT
     Dates: start: 20201127, end: 20201202
  8. LACTULOSE. [Concomitant]
     Active Substance: LACTULOSE
     Indication: CONSTIPATION
     Dates: start: 20191106, end: 20191106
  9. OCRELIZUMAB. [Suspect]
     Active Substance: OCRELIZUMAB
     Dosage: INFUSION COMPLETED WITHOUT INTERVENTION
     Route: 042
     Dates: start: 20130124, end: 20130124
  10. OCRELIZUMAB. [Suspect]
     Active Substance: OCRELIZUMAB
     Dosage: INFUSION COMPLETED WITHOUT INTERVENTION
     Route: 042
     Dates: start: 20170307, end: 20170307
  11. ONDANSETRON [Concomitant]
     Active Substance: ONDANSETRON
     Dosage: 1 AMPULE
     Dates: start: 20191201, end: 20191210
  12. CHLORPROMAZINE. [Concomitant]
     Active Substance: CHLORPROMAZINE
     Dates: start: 20191111, end: 20191112
  13. TAZOCIN [Concomitant]
     Active Substance: PIPERACILLIN SODIUM\TAZOBACTAM SODIUM
     Indication: PNEUMONIA
     Dates: start: 20191201, end: 20191207
  14. QUETIAPINE. [Concomitant]
     Active Substance: QUETIAPINE
     Indication: PSYCHOMOTOR HYPERACTIVITY
     Dates: start: 20191208, end: 20191210
  15. CEPHALEXIN. [Concomitant]
     Active Substance: CEPHALEXIN
     Dates: start: 20200516, end: 20200520
  16. BUSCOPAN [Concomitant]
     Active Substance: BUTYLSCOPOLAMINE BROMIDE
     Indication: SALIVARY HYPERSECRETION
     Dates: start: 20200902
  17. KETOCONAZOLE. [Concomitant]
     Active Substance: KETOCONAZOLE
     Indication: DERMATITIS CONTACT
     Dates: start: 20210304, end: 20210309
  18. OCRELIZUMAB. [Suspect]
     Active Substance: OCRELIZUMAB
     Indication: RELAPSING-REMITTING MULTIPLE SCLEROSIS
     Dosage: INFUSION WAS INTERRUPTED DUE TO INFUSION RELATED REACTION
     Route: 042
     Dates: start: 20121220, end: 20121220
  19. OCRELIZUMAB. [Suspect]
     Active Substance: OCRELIZUMAB
     Dosage: INFUSION COMPLETED WITHOUT INTERVENTION
     Route: 042
     Dates: start: 20151020, end: 20151020
  20. OCRELIZUMAB. [Suspect]
     Active Substance: OCRELIZUMAB
     Dosage: INFUSION COMPLETED WITHOUT INTERVENTION
     Route: 042
     Dates: start: 20180810, end: 20180810
  21. HIGROTON [Concomitant]
     Active Substance: CHLORTHALIDONE
     Indication: HYPERTENSION
     Dates: start: 20170110
  22. METHYLPREDNISOLONE. [Concomitant]
     Active Substance: METHYLPREDNISOLONE
     Dosage: (WEEK 2 TO WEEK 240) 24/JAN/2013, 13/JUN/2013, 19/NOV/2013, 22/MAY/2014, 13/NOV/2014, 25/NOV/2014, 3
     Dates: start: 20121220
  23. PARACETAMOL [Concomitant]
     Active Substance: ACETAMINOPHEN
     Indication: PAIN
     Dosage: (WEEK 0 TO WEEK 240) 13/NOV/2014, 25/NOV/2014, 30/APR/2015, 20/OCT/2015, 04/APR/2016, 05/APR/2016, 2
     Dates: start: 20140522
  24. ENOXAPARIN [Concomitant]
     Active Substance: ENOXAPARIN
     Dates: start: 20191108, end: 20191121
  25. MIRTAZAPINE. [Concomitant]
     Active Substance: MIRTAZAPINE
     Dates: start: 20191109, end: 20191210
  26. CHLORPROMAZINE. [Concomitant]
     Active Substance: CHLORPROMAZINE
     Dosage: 10 DROPS
     Dates: start: 20191113, end: 20191113
  27. RANITIDINE. [Concomitant]
     Active Substance: RANITIDINE
     Indication: GASTROINTESTINAL DISORDER PROPHYLAXIS
     Dates: start: 20191202, end: 20191208
  28. CEPHALEXIN. [Concomitant]
     Active Substance: CEPHALEXIN
     Indication: PNEUMONIA
     Dates: start: 20200511, end: 20200515
  29. SODIUM VALPROATE [Concomitant]
     Active Substance: VALPROATE SODIUM
     Indication: MYOCLONIC EPILEPSY
     Dates: start: 20200728, end: 20200902
  30. NEBACETIN [Concomitant]
     Active Substance: BACITRACIN ZINC\NEOMYCIN SULFATE
     Dates: start: 20201015, end: 20201018
  31. HALOPERIDOL. [Concomitant]
     Active Substance: HALOPERIDOL
     Dates: start: 20191025, end: 20191025
  32. METRONIDAZOLE. [Concomitant]
     Active Substance: METRONIDAZOLE
     Indication: DERMATITIS
     Dates: start: 20210303, end: 20210314
  33. NEOMICIN [Concomitant]
     Dates: start: 20210212, end: 20210217
  34. OCRELIZUMAB. [Suspect]
     Active Substance: OCRELIZUMAB
     Dosage: INFUSION COMPLETED WITHOUT INTERVENTION
     Route: 042
     Dates: start: 20130613, end: 20130613
  35. OCRELIZUMAB. [Suspect]
     Active Substance: OCRELIZUMAB
     Dosage: INFUSION COMPLETED WITHOUT INTERVENTION
     Route: 042
     Dates: start: 20131119, end: 20131119
  36. SYNTHROID [Concomitant]
     Active Substance: LEVOTHYROXINE SODIUM
     Indication: HYPOTHYROIDISM
     Dates: start: 201206
  37. AMPICILLIN;SULBACTAM [Concomitant]
     Active Substance: AMPICILLIN SODIUM\SULBACTAM SODIUM
     Indication: PNEUMONIA
     Dates: start: 20191112, end: 20191117
  38. GABALON [Concomitant]
     Active Substance: BACLOFEN
     Dosage: 1 TABLET
     Dates: start: 20191110, end: 20191210
  39. MEROPENEN [Concomitant]
     Indication: URINARY TRACT INFECTION
     Dates: start: 20200610
  40. SODIUM VALPROATE [Concomitant]
     Active Substance: VALPROATE SODIUM
     Dates: start: 20200903
  41. AMOXICILLIN. [Concomitant]
     Active Substance: AMOXICILLIN
     Indication: DENTAL IMPLANTATION
     Dates: start: 20150624, end: 20150628
  42. PROMETHAZINE [Concomitant]
     Active Substance: PROMETHAZINE HYDROCHLORIDE
     Indication: HYPERSENSITIVITY
     Dates: start: 20121220, end: 20121220
  43. BETAMETASONE [Concomitant]
     Active Substance: BETAMETHASONE
     Indication: DERMATITIS CONTACT
     Dates: start: 20210304, end: 20210309
  44. OCRELIZUMAB. [Suspect]
     Active Substance: OCRELIZUMAB
     Indication: RELAPSING-REMITTING MULTIPLE SCLEROSIS
     Dosage: INFUSION COMPLETED WITHOUT INTERVENTION
     Route: 042
     Dates: start: 20141113, end: 20141113
  45. OCRELIZUMAB. [Suspect]
     Active Substance: OCRELIZUMAB
     Dosage: INFUSION COMPLETED WITHOUT INTERVENTION
     Route: 042
     Dates: start: 20141125, end: 20141125
  46. ONDANSETRON [Concomitant]
     Active Substance: ONDANSETRON
     Indication: NAUSEA
     Dosage: 1 AMPULE
     Dates: start: 20191108, end: 20191121
  47. NYSTATIN. [Concomitant]
     Active Substance: NYSTATIN
  48. BOTULINUM TOXIN TYPE A [Concomitant]
     Active Substance: BOTULINUM TOXIN TYPE A
     Dates: start: 20190829, end: 20190829
  49. KETOCONAZOLE. [Concomitant]
     Active Substance: KETOCONAZOLE
     Indication: SKIN INJURY
     Dates: start: 20200118, end: 20200119
  50. TOBRAMYCIN. [Concomitant]
     Active Substance: TOBRAMYCIN
     Indication: CONJUNCTIVITIS
     Dates: start: 20191105, end: 20191108
  51. BACITRACIN. [Concomitant]
     Active Substance: BACITRACIN
     Dates: start: 20210212, end: 20210217
  52. PLACEBO [Suspect]
     Active Substance: UNSPECIFIED INGREDIENT
     Indication: RELAPSING-REMITTING MULTIPLE SCLEROSIS
     Route: 058
     Dates: start: 20121220, end: 20121220
  53. OCRELIZUMAB. [Suspect]
     Active Substance: OCRELIZUMAB
     Dosage: INFUSION COMPLETED WITHOUT INTERVENTION
     Route: 042
     Dates: start: 20160405, end: 20160405
  54. OCRELIZUMAB. [Suspect]
     Active Substance: OCRELIZUMAB
     Dosage: INFUSION COMPLETED WITHOUT INTERVENTION
     Route: 042
     Dates: start: 20190125, end: 20190125
  55. OCRELIZUMAB. [Suspect]
     Active Substance: OCRELIZUMAB
     Dosage: INFUSION COMPLETED WITHOUT INTERVENTION
     Route: 042
     Dates: start: 20190731, end: 20190731
  56. DRAMIN [Concomitant]
     Active Substance: DIMENHYDRINATE
     Dosage: FOR SLEEP INDUCTION
     Dates: start: 20130206
  57. PROMETAZINA [Concomitant]
     Dosage: (WEEK 24 TO WEEK 240) 13/JUN/2013, 19/NOV/2013, 22/MAY/2014, 13/NOV/2014, 25/NOV/2014, 30/APR/2015,
     Dates: start: 20130124
  58. OLANZAPINE. [Concomitant]
     Active Substance: OLANZAPINE
     Dates: start: 20191108, end: 20191109
  59. VITAMIN C [Concomitant]
     Active Substance: ASCORBIC ACID
     Dates: start: 20191110, end: 20191121
  60. BACITRACIN ZINC. [Concomitant]
     Active Substance: BACITRACIN ZINC
     Indication: INGROWING NAIL
     Dates: start: 20201015, end: 20201018
  61. PLACEBO [Suspect]
     Active Substance: UNSPECIFIED INGREDIENT
     Route: 058
     Dates: start: 20141024, end: 20141110
  62. OCRELIZUMAB. [Suspect]
     Active Substance: OCRELIZUMAB
     Dosage: INFUSION COMPLETED WITHOUT INTERVENTION
     Route: 042
     Dates: start: 20160923, end: 20160923
  63. OCRELIZUMAB. [Suspect]
     Active Substance: OCRELIZUMAB
     Dosage: INFUSION COMPLETED WITHOUT INTERVENTION
     Route: 042
     Dates: start: 20180206, end: 20180206
  64. DROSPIRENONE [Concomitant]
     Active Substance: DROSPIRENONE
     Indication: OVARIAN CYST
     Dates: start: 20140425, end: 20140515
  65. CHLORPROMAZINE. [Concomitant]
     Active Substance: CHLORPROMAZINE
     Dosage: 03/DEC/2019 TO 03/DEC/2019: 40 MG AND 01/DEC/2019 TO 01/DEC/2019: 40 MG
     Dates: start: 20191109, end: 20191109
  66. CLONAZEPAM. [Concomitant]
     Active Substance: CLONAZEPAM
     Dates: start: 20191203, end: 20191203
  67. PEMBROLIZUMAB. [Concomitant]
     Active Substance: PEMBROLIZUMAB
     Indication: PROGRESSIVE MULTIFOCAL LEUKOENCEPHALOPATHY
     Dates: start: 20191111, end: 20191111
  68. AMPICILLIN [Concomitant]
     Active Substance: AMPICILLIN
     Dates: start: 20191112, end: 20191117
  69. ENOXAPARIN [Concomitant]
     Active Substance: ENOXAPARIN
     Dates: start: 20191202, end: 20191209
  70. CARBAMAZEPINE. [Concomitant]
     Active Substance: CARBAMAZEPINE
     Dosage: FROM 23/SEP/2019 TO 04/NOV/2019: 400 MG
     Dates: start: 20190820, end: 20190922
  71. MONURIL [Concomitant]
     Active Substance: FOSFOMYCIN TROMETHAMINE
     Indication: URINARY TRACT INFECTION
     Dates: start: 20200422, end: 20200422
  72. NEOMYCIN SULPHATE [Concomitant]
     Active Substance: NEOMYCIN SULFATE
     Indication: INGROWING NAIL
     Dates: start: 20201015, end: 20201018
  73. AMOXICILLIN. [Concomitant]
     Active Substance: AMOXICILLIN
     Indication: URINARY TRACT INFECTION
     Dates: start: 20200808, end: 20200814
  74. PROMETHAZINE [Concomitant]
     Active Substance: PROMETHAZINE HYDROCHLORIDE
     Dosage: 1 AMPULE
     Dates: start: 20191107, end: 20191107

REACTIONS (1)
  - Encephalitis [Not Recovered/Not Resolved]

NARRATIVE: CASE EVENT DATE: 201906
